FAERS Safety Report 18401498 (Version 1)
Quarter: 2020Q4

REPORT INFORMATION
  Report Type: Spontaneous
  Country: FR (occurrence: FR)
  Receive Date: 20201020
  Receipt Date: 20201020
  Transmission Date: 20210114
  Serious: Yes (Life-Threatening)
  Sender: FDA-Public Use
  Company Number: FR-OCTA-HAPL01220FR

PATIENT
  Age: 4 Year
  Sex: Female

DRUGS (1)
  1. HUMAN ALBUMIN [Suspect]
     Active Substance: ALBUMIN HUMAN
     Indication: MUCOPOLYSACCHARIDOSIS I
     Dosage: NON PR?CIS??
     Route: 041
     Dates: start: 20200925, end: 20200926

REACTIONS (2)
  - Cardiac arrest [Unknown]
  - Transfusion-related acute lung injury [Recovering/Resolving]

NARRATIVE: CASE EVENT DATE: 20200926
